FAERS Safety Report 9800018 (Version 3)
Quarter: 2015Q3

REPORT INFORMATION
  Report Type: Spontaneous
  Country: US (occurrence: US)
  Receive Date: 20140106
  Receipt Date: 20150806
  Transmission Date: 20151125
  Serious: No
  Sender: FDA-Public Use
  Company Number: US-GILEAD-2010-0030998

PATIENT
  Age: 88 Year
  Sex: Male
  Weight: 77 kg

DRUGS (11)
  1. LETAIRIS [Suspect]
     Active Substance: AMBRISENTAN
     Indication: PULMONARY ARTERIAL HYPERTENSION
     Route: 048
     Dates: start: 20090723
  2. LIPITOR [Concomitant]
     Active Substance: ATORVASTATIN CALCIUM
  3. COUMADIN [Concomitant]
     Active Substance: WARFARIN SODIUM
  4. TOPROL XL [Concomitant]
     Active Substance: METOPROLOL SUCCINATE
  5. LASIX [Concomitant]
     Active Substance: FUROSEMIDE
  6. DIGOXIN. [Concomitant]
     Active Substance: DIGOXIN
  7. MULTIVITAMIN [Concomitant]
     Active Substance: VITAMINS
  8. LISINOPRIL. [Concomitant]
     Active Substance: LISINOPRIL
  9. ADVAIR DISKUS [Concomitant]
     Active Substance: FLUTICASONE PROPIONATE\SALMETEROL XINAFOATE
  10. WARFARIN [Concomitant]
     Active Substance: WARFARIN
  11. ASA [Concomitant]
     Active Substance: ASPIRIN

REACTIONS (1)
  - Drug ineffective for unapproved indication [Not Recovered/Not Resolved]

NARRATIVE: CASE EVENT DATE: 20090723
